FAERS Safety Report 7519991-5 (Version None)
Quarter: 2011Q2

REPORT INFORMATION
  Report Type: 
  Country: None (occurrence: None)
  Receive Date: 20110602
  Receipt Date: 20110518
  Transmission Date: 20111010
  Serious: Yes (Other)
  Sender: FDA-Public Use
  Company Number: DE-BAYER-2011-042216

PATIENT
  Age: 72 Year
  Sex: Male
  Weight: 78 kg

DRUGS (13)
  1. ACETYLSALICYLIC ACID LYSINATE [Suspect]
     Indication: ACUTE CORONARY SYNDROME
     Dosage: 300 MG, ONCE
     Route: 048
     Dates: start: 20110321, end: 20110321
  2. TIOTROPIUM BROMIDE [Concomitant]
     Indication: CHRONIC OBSTRUCTIVE PULMONARY DISEASE
     Dosage: DAILY DOSE 1 DF
     Route: 055
     Dates: start: 20040101
  3. PLATELETS [Concomitant]
     Indication: THROMBOSIS PROPHYLAXIS
     Dosage: DAILY DOSE 180 MG
     Route: 048
     Dates: start: 20110321, end: 20110322
  4. METAMIZOL [Concomitant]
     Indication: PAIN
  5. PANTOPRAZOLE [Concomitant]
     Indication: GASTROOESOPHAGEAL REFLUX DISEASE
     Dosage: DAILY DOSE 40 MG
     Route: 048
     Dates: start: 20100101, end: 20110321
  6. PROMETHAZINE [Concomitant]
     Indication: DEPRESSION
     Dosage: DAILY DOSE 15 GTT
     Route: 048
     Dates: start: 20110101
  7. AMIODARONE HCL [Concomitant]
     Indication: ACUTE CORONARY SYNDROME
     Dosage: DAILY DOSE 150 MG
     Route: 042
     Dates: start: 20110321, end: 20110321
  8. LORAZEPAM [Concomitant]
     Indication: SLEEP DISORDER
     Dosage: DAILY DOSE 1 MG
     Route: 048
     Dates: start: 20110322, end: 20110322
  9. SERTRALIN [Concomitant]
     Indication: DEPRESSION
     Dosage: DAILY DOSE 50 MG
     Route: 048
     Dates: start: 20100101, end: 20110322
  10. FLUTICASONE W/SALMETEROL [Concomitant]
     Indication: CHRONIC OBSTRUCTIVE PULMONARY DISEASE
     Dosage: DAILY DOSE 2 DF
     Route: 055
     Dates: start: 20040101
  11. THEOPHYLLINE [Concomitant]
     Indication: CHRONIC OBSTRUCTIVE PULMONARY DISEASE
     Dosage: DAILY DOSE 700 MG
     Route: 048
     Dates: start: 20040101, end: 20110323
  12. VERAPAMIL [Concomitant]
     Indication: HYPERTENSION
     Dosage: DAILY DOSE 240 MG
     Route: 048
     Dates: start: 20110323
  13. RAMIPRIL [Concomitant]
     Indication: HYPERTENSION
     Dosage: DAILY DOSE 2.5 MG
     Route: 048
     Dates: start: 20110321, end: 20110322

REACTIONS (1)
  - CHRONIC OBSTRUCTIVE PULMONARY DISEASE [None]
